FAERS Safety Report 10272448 (Version 1)
Quarter: 2014Q2

REPORT INFORMATION
  Report Type: Spontaneous
  Country: BE (occurrence: None)
  Receive Date: 20140627
  Receipt Date: 20140627
  Transmission Date: 20141212
  Serious: Yes (Other)
  Sender: FDA-Public Use
  Company Number: SYM-2014-22385

PATIENT
  Age: 44 Year
  Sex: Female

DRUGS (3)
  1. WELLBUTRIN (BUPROPION HYDROCHLORIDE) (TABLET) (BUPROPION HYDROCHLORIDE) [Suspect]
     Indication: MAJOR DEPRESSION
     Dates: start: 201104, end: 201105
  2. WELLBUTRIN (BUPROPION HYDROCHLORIDE) (TABLET) (BUPROPION HYDROCHLORIDE) [Suspect]
     Indication: APATHY
     Dates: start: 201104, end: 201105
  3. SPIRALEXA  (ESCITALOPRAM) (ESCITALOPRAM) [Concomitant]

REACTIONS (4)
  - Hallucination [None]
  - Anxiety [None]
  - Fear [None]
  - Hallucination, visual [None]
